FAERS Safety Report 6235473-5 (Version None)
Quarter: 2009Q2

REPORT INFORMATION
  Report Type: 
  Country: None (occurrence: None)
  Receive Date: 20090618
  Receipt Date: 20080415
  Transmission Date: 20091009
  Serious: No
  Sender: FDA-Public Use
  Company Number: US-ASTRAZENECA-2008UW07678

PATIENT
  Age: 62 Year
  Sex: Male

DRUGS (2)
  1. RHINOCORT [Suspect]
     Indication: MULTIPLE ALLERGIES
     Dosage: 32 MCG 120 METER SPRAY/UNIT
     Route: 045
  2. SYNTHROID [Concomitant]

REACTIONS (2)
  - ANXIETY [None]
  - MEMORY IMPAIRMENT [None]
